FAERS Safety Report 7391114-5 (Version None)
Quarter: 2011Q2

REPORT INFORMATION
  Report Type: 
  Country: None (occurrence: None)
  Receive Date: 20110404
  Receipt Date: 20110322
  Transmission Date: 20111010
  Serious: Yes (Hospitalization)
  Sender: FDA-Public Use
  Company Number: NL-ELI_LILLY_AND_COMPANY-NL201103006267

PATIENT
  Sex: Male
  Weight: 37 kg

DRUGS (1)
  1. STRATTERA [Suspect]
     Indication: ATTENTION DEFICIT/HYPERACTIVITY DISORDER
     Dosage: 18 MG, QD
     Dates: start: 20101029, end: 20101101

REACTIONS (4)
  - CRYING [None]
  - DYSPNOEA [None]
  - AGGRESSION [None]
  - ANXIETY [None]
